FAERS Safety Report 23904843 (Version 1)
Quarter: 2024Q2

REPORT INFORMATION
  Report Type: Spontaneous
  Country: SI (occurrence: SI)
  Receive Date: 20240527
  Receipt Date: 20240527
  Transmission Date: 20240716
  Serious: Yes (Life-Threatening)
  Sender: FDA-Public Use
  Company Number: None

PATIENT
  Age: 77 Year
  Sex: Male

DRUGS (16)
  1. OFEV [Suspect]
     Active Substance: NINTEDANIB
     Indication: Pulmonary fibrosis
     Route: 048
     Dates: start: 202109, end: 202405
  2. OFEV [Suspect]
     Active Substance: NINTEDANIB
     Indication: Systemic scleroderma
  3. Hidrokortizon Altamedics 10 MG [Concomitant]
     Indication: Product used for unknown indication
     Dosage: 1 TBL AT 8AM AND 1/2TBL AT 1PM
     Dates: start: 20240312
  4. ASPIRIN [Concomitant]
     Active Substance: ASPIRIN
     Indication: Product used for unknown indication
     Dosage: THE PATIENT RECEIVED 1 SC.
     Dates: start: 20240312
  5. Combodart 0,5 MG / 0,4 MG [Concomitant]
     Indication: Product used for unknown indication
     Dosage: STRENGHT: 0,5 MG/0,4 MG
     Dates: start: 20240429
  6. CONCOR COR 2,5 MG [Concomitant]
     Indication: Product used for unknown indication
     Dates: start: 20240312
  7. Amlopin 5 MG [Concomitant]
     Indication: Product used for unknown indication
     Dates: start: 20240312
  8. Targinact 5 MG/ 2,5 MG [Concomitant]
     Indication: Product used for unknown indication
     Dosage: STRENGHT: 5 MG/2,5 MG
     Dates: start: 20240228
  9. SIRDALUD 2 mg [Concomitant]
     Indication: Product used for unknown indication
     Dates: start: 20240429
  10. ANALGIN 500 MG [Concomitant]
     Indication: Product used for unknown indication
     Dosage: UP TO 3X1
     Dates: start: 20240325
  11. DEXAMONO 1 MG/ML [Concomitant]
     Indication: Product used for unknown indication
     Dosage: STRENGHT: 1 MG/ML?DOSE: 3X DAILY IN THE OPERATED EYE
     Dates: start: 20240408
  12. Yellox 0.9 MG/ML [Concomitant]
     Indication: Product used for unknown indication
     Dosage: STRENGHT: 0,9 MG/ML ?DOSE: 2X1GTT IN THE OPERATED EYE FOR 14 DAYS
     Dates: start: 20240408
  13. Candea 8 MG [Concomitant]
     Indication: Product used for unknown indication
     Dosage: 1X
     Dates: start: 20240220
  14. Azyter 15 MG/G [Concomitant]
     Indication: Product used for unknown indication
     Dosage: STRENGHT: 15 MG/G ?DOSE: 2X1GTT FOR  3 DAYS
     Dates: start: 20240408
  15. LAMISIL [Concomitant]
     Active Substance: TERBINAFINE HYDROCHLORIDE
     Indication: Product used for unknown indication
     Dates: start: 20240325
  16. Tonocardin 4 MG [Concomitant]
     Indication: Product used for unknown indication
     Dates: start: 20240410

REACTIONS (1)
  - Ischaemic stroke [Recovering/Resolving]

NARRATIVE: CASE EVENT DATE: 20240501
